FAERS Safety Report 10512098 (Version 1)
Quarter: 2014Q4

REPORT INFORMATION
  Report Type: Spontaneous
  Country: US (occurrence: US)
  Receive Date: 20141010
  Receipt Date: 20141010
  Transmission Date: 20150528
  Serious: Yes (Life-Threatening)
  Sender: FDA-Public Use
  Company Number: US-ASTRAZENECA-2014SE74116

PATIENT
  Age: 23 Year
  Sex: Female

DRUGS (2)
  1. LIDOCAINE WITH EPINEPHRINE [Suspect]
     Active Substance: EPINEPHRINE BITARTRATE\LIDOCAINE HYDROCHLORIDE
     Indication: CAESAREAN SECTION
     Dosage: 1:2000.000 EPINEPHRINE
     Route: 008
  2. MORPHINE [Suspect]
     Active Substance: MORPHINE
     Indication: CAESAREAN SECTION
     Route: 042

REACTIONS (4)
  - Toxicity to various agents [Recovered/Resolved]
  - Coma [Recovered/Resolved]
  - Brain stem syndrome [Recovered/Resolved]
  - Apnoea [Recovered/Resolved]
